FAERS Safety Report 9403862 (Version 4)
Quarter: 2013Q4

REPORT INFORMATION
  Report Type: Spontaneous
  Country: US (occurrence: US)
  Receive Date: 20130717
  Receipt Date: 20131219
  Transmission Date: 20140711
  Serious: No
  Sender: FDA-Public Use
  Company Number: US-BIOGENIDEC-2013BI055219

PATIENT
  Age: 47 Year
  Sex: Male

DRUGS (3)
  1. TYSABRI [Suspect]
     Indication: MULTIPLE SCLEROSIS
     Route: 042
     Dates: start: 20110823, end: 20130103
  2. TYSABRI [Suspect]
     Indication: MULTIPLE SCLEROSIS
     Route: 042
     Dates: start: 20130410
  3. KEPPRA [Concomitant]
     Indication: CONVULSION

REACTIONS (9)
  - Multiple sclerosis relapse [Unknown]
  - Dysphagia [Unknown]
  - Headache [Not Recovered/Not Resolved]
  - Cellulitis [Unknown]
  - Oedema peripheral [Unknown]
  - Nasal congestion [Unknown]
  - Off label use [Not Recovered/Not Resolved]
  - Insomnia [Unknown]
  - General physical health deterioration [Not Recovered/Not Resolved]
